FAERS Safety Report 10553815 (Version 9)
Quarter: 2015Q4

REPORT INFORMATION
  Report Type: Spontaneous
  Country: US (occurrence: US)
  Receive Date: 20141030
  Receipt Date: 20151225
  Transmission Date: 20160304
  Serious: Yes (Other)
  Sender: FDA-Public Use
  Company Number: US-ROCHE-1478209

PATIENT
  Sex: Male
  Weight: 82.63 kg

DRUGS (26)
  1. ARAVA [Interacting]
     Active Substance: LEFLUNOMIDE
     Route: 042
     Dates: end: 201409
  2. CLONIDINE. [Concomitant]
     Active Substance: CLONIDINE
     Indication: HYPERTENSION
     Route: 048
     Dates: start: 2012
  3. FLEXERIL [Concomitant]
     Active Substance: CYCLOBENZAPRINE HYDROCHLORIDE
     Indication: MUSCLE RELAXANT THERAPY
  4. ACTEMRA [Interacting]
     Active Substance: TOCILIZUMAB
     Indication: RHEUMATOID ARTHRITIS
     Route: 042
     Dates: start: 201308, end: 20131103
  5. ARAVA [Interacting]
     Active Substance: LEFLUNOMIDE
     Indication: RHEUMATOID ARTHRITIS
     Route: 042
     Dates: end: 201311
  6. SULPHASALAZINE [Concomitant]
     Active Substance: SULFASALAZINE
     Indication: RHEUMATOID ARTHRITIS
     Route: 048
     Dates: start: 2010
  7. EFFEXOR XR [Concomitant]
     Active Substance: VENLAFAXINE HYDROCHLORIDE
     Indication: DEPRESSION
     Route: 048
     Dates: start: 2003
  8. TRAMADOL. [Concomitant]
     Active Substance: TRAMADOL
  9. LITHIUM CARBONATE. [Concomitant]
     Active Substance: LITHIUM CARBONATE
     Indication: ATTENTION DEFICIT/HYPERACTIVITY DISORDER
  10. ACTEMRA [Interacting]
     Active Substance: TOCILIZUMAB
     Route: 042
     Dates: start: 2015
  11. LITHIUM CARBONATE. [Concomitant]
     Active Substance: LITHIUM CARBONATE
     Indication: BIPOLAR DISORDER
  12. ENBREL [Concomitant]
     Active Substance: ETANERCEPT
  13. PREDNISONE. [Concomitant]
     Active Substance: PREDNISONE
     Dosage: SHE STARETD IN MAR/2015 AS TREATMENT DRUG
     Route: 065
  14. ARAVA [Concomitant]
     Active Substance: LEFLUNOMIDE
  15. GABAPENTIN. [Concomitant]
     Active Substance: GABAPENTIN
     Indication: PAIN
  16. ACTEMRA [Interacting]
     Active Substance: TOCILIZUMAB
     Route: 042
     Dates: end: 201409
  17. HUMIRA [Suspect]
     Active Substance: ADALIMUMAB
     Indication: RHEUMATOID ARTHRITIS
     Route: 058
     Dates: start: 2011, end: 2013
  18. VENLAFAXINE [Concomitant]
     Active Substance: VENLAFAXINE HYDROCHLORIDE
     Indication: DEPRESSION
  19. LITHIUM CARBONATE. [Concomitant]
     Active Substance: LITHIUM CARBONATE
     Indication: POST-TRAUMATIC STRESS DISORDER
     Dosage: 300 MG AM AND 600 MG PM
     Route: 065
     Dates: start: 2003
  20. TAMSULOSIN [Concomitant]
     Active Substance: TAMSULOSIN
     Route: 065
  21. VESICARE [Concomitant]
     Active Substance: SOLIFENACIN SUCCINATE
     Route: 065
  22. TRAZODONE [Concomitant]
     Active Substance: TRAZODONE HYDROCHLORIDE
     Indication: SLEEP DISORDER
  23. FOLIC ACID. [Concomitant]
     Active Substance: FOLIC ACID
     Indication: DIARRHOEA
     Dosage: ONE TABLET IN THE MORNING AND ONE AT NIGHT
     Route: 065
     Dates: start: 2013
  24. FLOMAX (UNITED STATES) [Concomitant]
     Route: 048
     Dates: start: 2013
  25. KLONOPIN [Suspect]
     Active Substance: CLONAZEPAM
     Indication: ANXIETY
     Route: 065
  26. SULPHASALAZINE [Concomitant]
     Active Substance: SULFASALAZINE
     Route: 065

REACTIONS (55)
  - Oral mucosal erythema [Recovered/Resolved]
  - Skin disorder [Unknown]
  - Salivary gland disorder [Recovered/Resolved]
  - Opportunistic infection [Not Recovered/Not Resolved]
  - Wound [Not Recovered/Not Resolved]
  - Skin lesion [Not Recovered/Not Resolved]
  - Skin exfoliation [Not Recovered/Not Resolved]
  - Pruritus [Not Recovered/Not Resolved]
  - Ill-defined disorder [Recovering/Resolving]
  - Wound [Unknown]
  - Scar [Unknown]
  - Skin exfoliation [Recovered/Resolved]
  - Pain [Unknown]
  - Hypophagia [Recovered/Resolved]
  - Rash erythematous [Not Recovered/Not Resolved]
  - Hypoxia [Recovered/Resolved]
  - Heart rate decreased [Not Recovered/Not Resolved]
  - Mouth haemorrhage [Recovering/Resolving]
  - Joint lock [Unknown]
  - Bacterial infection [Not Recovered/Not Resolved]
  - Blood blister [Recovered/Resolved]
  - Blister [Recovering/Resolving]
  - Macule [Not Recovered/Not Resolved]
  - Dyspnoea [Recovered/Resolved]
  - Cataract [Not Recovered/Not Resolved]
  - Aptyalism [Recovered/Resolved]
  - Skin papilloma [Recovering/Resolving]
  - Skin oedema [Unknown]
  - Platelet count decreased [Recovered/Resolved]
  - Pain [Not Recovered/Not Resolved]
  - Haemoglobin decreased [Recovered/Resolved]
  - Secretion discharge [Unknown]
  - Infection [Unknown]
  - Skin lesion [Unknown]
  - Skin oedema [Recovering/Resolving]
  - Nasal ulcer [Recovering/Resolving]
  - Diarrhoea [Not Recovered/Not Resolved]
  - Dry mouth [Unknown]
  - Stress [Not Recovered/Not Resolved]
  - Ill-defined disorder [Unknown]
  - Viral infection [Unknown]
  - Skin fissures [Unknown]
  - Off label use [Unknown]
  - Amnesia [Not Recovered/Not Resolved]
  - Red blood cell count decreased [Recovered/Resolved]
  - Platelet disorder [Unknown]
  - Drug interaction [Unknown]
  - Oral pain [Recovered/Resolved]
  - Bipolar disorder [Unknown]
  - Bacterial infection [Not Recovered/Not Resolved]
  - Skin ulcer [Not Recovered/Not Resolved]
  - Rheumatoid factor decreased [Unknown]
  - Hypersensitivity [Unknown]
  - Fibromyalgia [Unknown]
  - Coccydynia [Unknown]

NARRATIVE: CASE EVENT DATE: 2011
